FAERS Safety Report 5341766-6 (Version None)
Quarter: 2007Q2

REPORT INFORMATION
  Report Type: 
  Country: None (occurrence: None)
  Receive Date: 20070529
  Receipt Date: 20070529
  Transmission Date: 20071010
  Serious: Yes (Life-Threatening, Hospitalization)
  Sender: FDA-Public Use
  Company Number: None

PATIENT
  Age: 61 Year
  Sex: Male
  Weight: 80.7403 kg

DRUGS (2)
  1. TYLENOL W/ CODEINE NO. 3 [Suspect]
     Indication: PAIN
     Dosage: 1 TABLET TID PRN PAIN PO
     Route: 048
     Dates: start: 20061013, end: 20070430
  2. ALPRAZOLAM [Suspect]
     Indication: ANXIETY
     Dosage: 1 TABLET Q6H PRN PO
     Route: 048
     Dates: start: 20041109, end: 20070430

REACTIONS (3)
  - INCOHERENT [None]
  - MULTIPLE DRUG OVERDOSE [None]
  - SUICIDE ATTEMPT [None]
